FAERS Safety Report 7312417-6 (Version None)
Quarter: 2011Q1

REPORT INFORMATION
  Report Type: 
  Country: None (occurrence: None)
  Receive Date: 20110224
  Receipt Date: 20110211
  Transmission Date: 20110831
  Serious: Yes (Other)
  Sender: FDA-Public Use
  Company Number: US-CEPHALON-2011000679

PATIENT
  Sex: Female

DRUGS (2)
  1. NUVIGIL [Suspect]
     Route: 048
  2. PROVIGIL [Suspect]
     Route: 048

REACTIONS (1)
  - RASH [None]
